FAERS Safety Report 12494812 (Version 1)
Quarter: 2016Q2

REPORT INFORMATION
  Report Type: Spontaneous
  Country: JP (occurrence: JP)
  Receive Date: 20160624
  Receipt Date: 20160624
  Transmission Date: 20160815
  Serious: Yes (Other)
  Sender: FDA-Public Use
  Company Number: JP-009507513-1606JPN008683

PATIENT
  Sex: Female

DRUGS (7)
  1. SINGULAIR [Suspect]
     Active Substance: MONTELUKAST SODIUM
     Dosage: 10 MG, UNK
     Route: 048
     Dates: start: 201606
  2. SINGULAIR [Suspect]
     Active Substance: MONTELUKAST SODIUM
     Indication: ASTHMA
     Dosage: DAILY DOSE UNKNOWN
     Route: 048
     Dates: start: 201510
  3. ALLEGRA [Concomitant]
     Active Substance: FEXOFENADINE HYDROCHLORIDE
     Dosage: DAILY DOSE UNKNOWN
     Route: 048
  4. INCREMIN [Concomitant]
     Active Substance: FERRIC PYROPHOSPHATE
     Dosage: DAILY DOSAGE UNKNOWN
     Route: 048
  5. METHYCOBAL [Concomitant]
     Active Substance: METHYLCOBALAMIN
     Dosage: DAILY DOSE UNKNOWN
     Route: 048
  6. SINGULAIR [Suspect]
     Active Substance: MONTELUKAST SODIUM
     Indication: ASTHMA
     Dosage: 10 MG, UNK
     Route: 048
     Dates: start: 20160602
  7. KEISHI-BUKURYO-GAN [Concomitant]
     Dosage: DAILY DOSE UNKNOWN
     Route: 048

REACTIONS (8)
  - Feeling abnormal [Unknown]
  - Nausea [Unknown]
  - Anaphylactic shock [Unknown]
  - Gamma-glutamyltransferase increased [Unknown]
  - Rotator cuff syndrome [Unknown]
  - Nasopharyngitis [Recovered/Resolved]
  - Product taste abnormal [Unknown]
  - Drug hypersensitivity [Unknown]

NARRATIVE: CASE EVENT DATE: 201603
